FAERS Safety Report 9614688 (Version 3)
Quarter: 2014Q2

REPORT INFORMATION
  Report Type: Spontaneous
  Country: US (occurrence: US)
  Receive Date: 20131011
  Receipt Date: 20140619
  Transmission Date: 20141212
  Serious: Yes (Hospitalization, Other)
  Sender: FDA-Public Use
  Company Number: US-BAYER-2013-122963

PATIENT
  Age: 20 Year
  Sex: Female
  Weight: 61.22 kg

DRUGS (4)
  1. MIRENA [Suspect]
     Indication: CONTRACEPTION
     Dosage: 20 MCG/24HR, CONT
     Route: 015
     Dates: start: 20110907, end: 20110928
  2. OMNICEF [Concomitant]
     Dosage: 300 MG, BID
     Route: 048
  3. LANTUS [Concomitant]
     Dosage: 40 UNITS NIGHTLY
     Route: 058
  4. NOVOLOG [Concomitant]
     Dosage: 1 UNIT PER 8 G CARBOHYDRATE

REACTIONS (12)
  - Uterine perforation [None]
  - Medical device complication [None]
  - Genital haemorrhage [None]
  - Abdominal pain lower [None]
  - Pelvic pain [None]
  - Injury [None]
  - Emotional distress [None]
  - Internal injury [None]
  - Medical device discomfort [None]
  - Depression [None]
  - Anxiety [None]
  - Fear [None]
